FAERS Safety Report 6076869-4 (Version None)
Quarter: 2009Q1

REPORT INFORMATION
  Report Type: 
  Country: None (occurrence: None)
  Receive Date: 20090213
  Receipt Date: 20090202
  Transmission Date: 20090719
  Serious: Yes (Other)
  Sender: FDA-Public Use
  Company Number: IL-JNJFOC-20081203704

PATIENT
  Age: 16 Year
  Sex: Female

DRUGS (3)
  1. REMICADE [Suspect]
     Route: 042
  2. REMICADE [Suspect]
     Indication: CROHN'S DISEASE
     Dosage: RECEIVED 3 INFUSIONS
     Route: 042
  3. AZATHIAPRINE [Concomitant]

REACTIONS (2)
  - DIARRHOEA [None]
  - INTESTINAL STENOSIS [None]
